FAERS Safety Report 26163212 (Version 1)
Quarter: 2025Q4

REPORT INFORMATION
  Report Type: Spontaneous
  Country: EU (occurrence: EU)
  Receive Date: 20251216
  Receipt Date: 20251216
  Transmission Date: 20260118
  Serious: Yes (Hospitalization)
  Sender: PFIZER
  Company Number: None

PATIENT
  Age: 77 Year
  Sex: Female
  Weight: 60.7 kg

DRUGS (4)
  1. MEKTOVI [Suspect]
     Active Substance: BINIMETINIB
     Indication: Metastatic malignant melanoma
     Dosage: 3 TABLETS OF 15 MG MORNING AND EVENING (12 HOURS APART) THAT IS (I.E.) 90 MG/DAY
     Route: 048
     Dates: start: 20251023, end: 20251029
  2. MEKTOVI [Suspect]
     Active Substance: BINIMETINIB
     Dosage: 3 TABLETS OF 45 MG MORNING AND EVENING (AT 12-HOUR INTERVALS)
     Route: 048
     Dates: start: 20251030, end: 20251112
  3. MEKTOVI [Suspect]
     Active Substance: BINIMETINIB
     Dosage: 3 TABLETS OF 15 MG MORNING AND EVENING (12 HOURS APART) I.E. 90 MG/DAY
     Route: 048
     Dates: start: 20251113, end: 20251120
  4. BRAFTOVI [Concomitant]
     Active Substance: ENCORAFENIB
     Indication: Metastatic malignant melanoma
     Dosage: 6 CAPSULES OF 75 MG IN THE EVENING AT A FIXED TIME, I.E. 450 MG IN TOTAL/DAY
     Route: 048
     Dates: start: 20251023, end: 20251120

REACTIONS (4)
  - Hepatic cytolysis [Recovering/Resolving]
  - Asthenia [Recovering/Resolving]
  - Nausea [Recovering/Resolving]
  - Medication error [Recovered/Resolved]

NARRATIVE: CASE EVENT DATE: 20251030
